FAERS Safety Report 4684644-8 (Version None)
Quarter: 2005Q2

REPORT INFORMATION
  Report Type: 
  Country: None (occurrence: None)
  Receive Date: 20050603
  Receipt Date: 20050516
  Transmission Date: 20051028
  Serious: Yes (Death)
  Sender: FDA-Public Use
  Company Number: DSA_70650_2005

PATIENT
  Sex: Male

DRUGS (5)
  1. DARVON [Suspect]
     Dosage: DF
  2. DIAZEPAM [Suspect]
     Dosage: DF
  3. PEGASYS [Suspect]
     Indication: HEPATITIS C
     Dosage: DF
  4. COPEGUS [Suspect]
     Indication: HEPATITIS C
     Dosage: DF
  5. COPEGUS [Concomitant]

REACTIONS (2)
  - DRUG TOXICITY [None]
  - PNEUMONIA [None]
